FAERS Safety Report 4729955-2 (Version None)
Quarter: 2005Q3

REPORT INFORMATION
  Report Type: 
  Country: None (occurrence: None)
  Receive Date: 20050728
  Receipt Date: 20050718
  Transmission Date: 20060218
  Serious: Yes (Hospitalization)
  Sender: FDA-Public Use
  Company Number: 195618

PATIENT
  Age: 65 Year
  Sex: Female
  Weight: 63.5036 kg

DRUGS (11)
  1. AVONEX [Suspect]
     Indication: MULTIPLE SCLEROSIS
     Dosage: 30 UG;QW;IM
     Route: 030
     Dates: start: 19980501, end: 20000101
  2. AVONEX [Suspect]
     Indication: MULTIPLE SCLEROSIS
     Dosage: 30 UG;QW;IM
     Route: 030
     Dates: start: 20040328, end: 20040505
  3. LESCOL [Concomitant]
  4. ASPIRIN [Concomitant]
  5. OXYBUTYNIN [Concomitant]
  6. DIAZEPAM [Concomitant]
  7. BACLOFEN [Concomitant]
  8. LEVOXYL [Concomitant]
  9. GLYBURIDE [Concomitant]
  10. AVANDIA [Concomitant]
  11. METFORMIN HCL [Concomitant]

REACTIONS (19)
  - AMNESIA [None]
  - ANOREXIA [None]
  - ARTHRITIS [None]
  - ASTHENIA [None]
  - BLADDER DISORDER [None]
  - CHEST PAIN [None]
  - CONDITION AGGRAVATED [None]
  - CYSTITIS [None]
  - DEPRESSION [None]
  - DIABETES MELLITUS [None]
  - DIFFICULTY IN WALKING [None]
  - FALL [None]
  - HYPERHIDROSIS [None]
  - HYPERSOMNIA [None]
  - INFLUENZA LIKE ILLNESS [None]
  - MEMORY IMPAIRMENT [None]
  - MULTIPLE SCLEROSIS [None]
  - PAIN [None]
  - VOMITING [None]
